FAERS Safety Report 5274557-5 (Version None)
Quarter: 2007Q1

REPORT INFORMATION
  Report Type: 
  Country: None (occurrence: None)
  Receive Date: 20070323
  Receipt Date: 20070313
  Transmission Date: 20070707
  Serious: Yes (Other)
  Sender: FDA-Public Use
  Company Number: US-PFIZER INC-2007020364

PATIENT
  Sex: Female
  Weight: 99.8 kg

DRUGS (5)
  1. CHANTIX [Suspect]
     Indication: SMOKING CESSATION THERAPY
  2. LUNESTA [Concomitant]
  3. AVAPRO [Concomitant]
  4. LEVOTHYROXINE SODIUM [Concomitant]
  5. TRIAMTERENE [Concomitant]

REACTIONS (1)
  - HOMICIDAL IDEATION [None]
